FAERS Safety Report 25213341 (Version 1)
Quarter: 2025Q2

REPORT INFORMATION
  Report Type: Spontaneous
  Country: FR (occurrence: FR)
  Receive Date: 20250418
  Receipt Date: 20250418
  Transmission Date: 20250716
  Serious: Yes (Death, Other)
  Sender: PFIZER
  Company Number: FR-PFIZER INC-PV202500043373

PATIENT
  Sex: Female

DRUGS (1)
  1. ELREXFIO [Suspect]
     Active Substance: ELRANATAMAB-BCMM
     Indication: Plasma cell myeloma
     Route: 030

REACTIONS (5)
  - Septic shock [Fatal]
  - Disseminated intravascular coagulation [Unknown]
  - Intra-abdominal haematoma [Unknown]
  - Blood fibrinogen decreased [Unknown]
  - Off label use [Unknown]
